FAERS Safety Report 13771294 (Version 1)
Quarter: 2017Q3

REPORT INFORMATION
  Report Type: Spontaneous
  Country: US (occurrence: US)
  Receive Date: 20170720
  Receipt Date: 20170720
  Transmission Date: 20171127
  Serious: Yes (Hospitalization, Other)
  Sender: FDA-Public Use
  Company Number: None

PATIENT
  Age: 62 Year
  Sex: Male
  Weight: 76.5 kg

DRUGS (1)
  1. CLOZARIL [Suspect]
     Active Substance: CLOZAPINE
     Indication: SCHIZOPHRENIA
     Dosage: ?          OTHER DOSE:MG;?
     Route: 048
     Dates: start: 20170424, end: 20170505

REACTIONS (4)
  - Pneumonia aspiration [None]
  - Blood lactic acid increased [None]
  - Blood creatinine increased [None]
  - Hypoxia [None]

NARRATIVE: CASE EVENT DATE: 20170505
